FAERS Safety Report 23692483 (Version 1)
Quarter: 2024Q1

REPORT INFORMATION
  Report Type: Spontaneous
  Country: US (occurrence: None)
  Receive Date: 20240329
  Receipt Date: 20240329
  Transmission Date: 20240409
  Serious: No
  Sender: FDA-Public Use
  Company Number: None

PATIENT
  Age: 20 Year
  Sex: Male

DRUGS (2)
  1. TOBRAMYCIN [Suspect]
     Active Substance: TOBRAMYCIN
     Indication: Respiratory disorder
     Dosage: FREQUENCY : TWICE A DAY;?
     Dates: start: 20230518
  2. TOBRAMYCIN [Suspect]
     Active Substance: TOBRAMYCIN
     Indication: Infection prophylaxis

REACTIONS (2)
  - Upper respiratory tract infection [None]
  - Bronchitis [None]

NARRATIVE: CASE EVENT DATE: 20240301
